FAERS Safety Report 5432129-3 (Version None)
Quarter: 2007Q3

REPORT INFORMATION
  Report Type: 
  Country: None (occurrence: None)
  Receive Date: 20070830
  Receipt Date: 20070820
  Transmission Date: 20080115
  Serious: Yes (Hospitalization)
  Sender: FDA-Public Use
  Company Number: GB-ABBOTT-07P-167-0378706-00

PATIENT
  Sex: Female

DRUGS (2)
  1. KALETRA [Suspect]
     Indication: PROPHYLAXIS AGAINST HIV INFECTION
     Route: 048
     Dates: end: 20070809
  2. DOCETAXEL [Concomitant]
     Indication: BREAST CANCER

REACTIONS (8)
  - ARTHRALGIA [None]
  - DRUG TOXICITY [None]
  - ERYTHEMA [None]
  - MUCOSAL INFLAMMATION [None]
  - MYALGIA [None]
  - PYREXIA [None]
  - RASH MACULO-PAPULAR [None]
  - SKIN EXFOLIATION [None]
